FAERS Safety Report 21540746 (Version 3)
Quarter: 2023Q2

REPORT INFORMATION
  Report Type: Spontaneous
  Country: US (occurrence: US)
  Receive Date: 20221102
  Receipt Date: 20230403
  Transmission Date: 20230721
  Serious: No
  Sender: FDA-Public Use
  Company Number: US-BoehringerIngelheim-2022-BI-200679

PATIENT
  Age: 66 Year
  Sex: Male

DRUGS (1)
  1. OLODATEROL HYDROCHLORIDE\TIOTROPIUM BROMIDE MONOHYDRATE [Suspect]
     Active Substance: OLODATEROL HYDROCHLORIDE\TIOTROPIUM BROMIDE MONOHYDRATE
     Indication: Chronic obstructive pulmonary disease
     Route: 045
     Dates: start: 20220601

REACTIONS (8)
  - Drug ineffective [Unknown]
  - Drug hypersensitivity [Recovered/Resolved]
  - Anxiety [Unknown]
  - Pharyngeal paraesthesia [Unknown]
  - Productive cough [Unknown]
  - Dyspnoea [Unknown]
  - Retching [Unknown]
  - Choking [Unknown]

NARRATIVE: CASE EVENT DATE: 20220601
